FAERS Safety Report 10387372 (Version 2)
Quarter: 2014Q3

REPORT INFORMATION
  Report Type: Spontaneous
  Country: CA (occurrence: CA)
  Receive Date: 20140815
  Receipt Date: 20140815
  Transmission Date: 20150326
  Serious: Yes (Death, Hospitalization)
  Sender: FDA-Public Use
  Company Number: CA-ASTELLAS-2014US000544

PATIENT
  Age: 73 Year
  Sex: Male

DRUGS (2)
  1. XTANDI [Suspect]
     Active Substance: ENZALUTAMIDE
     Indication: NEOPLASM MALIGNANT
     Route: 048
     Dates: start: 20131230, end: 20140102
  2. XTANDI [Suspect]
     Active Substance: ENZALUTAMIDE
     Route: 048
     Dates: start: 20140105

REACTIONS (2)
  - Bacterial test positive [Unknown]
  - Death [Fatal]

NARRATIVE: CASE EVENT DATE: 20140102
